FAERS Safety Report 10263143 (Version 2)
Quarter: 2014Q2

REPORT INFORMATION
  Report Type: Report from Study
  Country: US (occurrence: US)
  Receive Date: 20140626
  Receipt Date: 20140626
  Transmission Date: 20141212
  Serious: Yes (Other)
  Sender: FDA-Public Use
  Company Number: US-MYLANLABS-2014S1002981

PATIENT
  Age: 34 Year
  Sex: Male

DRUGS (4)
  1. CLOZAPINE TABLETS [Suspect]
     Route: 048
     Dates: start: 20131114, end: 20140206
  2. CLOZAPINE TABLETS [Suspect]
     Route: 048
     Dates: start: 20131114, end: 20140206
  3. HALOPERIDOL [Concomitant]
  4. LORAZEPAM [Concomitant]

REACTIONS (1)
  - Granulocytopenia [Not Recovered/Not Resolved]
